FAERS Safety Report 5935816-3 (Version None)
Quarter: 2008Q4

REPORT INFORMATION
  Report Type: 
  Country: None (occurrence: None)
  Receive Date: 20081030
  Receipt Date: 20081023
  Transmission Date: 20090506
  Serious: Yes (Death, Other)
  Sender: FDA-Public Use
  Company Number: PHHY2008BR25781

PATIENT
  Sex: Male

DRUGS (2)
  1. GLEEVEC [Suspect]
     Indication: CHRONIC MYELOID LEUKAEMIA
     Dosage: 400 MG DAILY
     Route: 048
     Dates: start: 20000101
  2. GLEEVEC [Suspect]
     Dosage: 200 MG DAILY
     Route: 048

REACTIONS (7)
  - BLAST CRISIS IN MYELOGENOUS LEUKAEMIA [None]
  - HEPATIC FAILURE [None]
  - ORGAN FAILURE [None]
  - PLATELET COUNT DECREASED [None]
  - RENAL FAILURE [None]
  - SPLEEN DISORDER [None]
  - WHITE BLOOD CELL COUNT INCREASED [None]
